FAERS Safety Report 8988950 (Version 1)
Quarter: 2012Q4

REPORT INFORMATION
  Report Type: Spontaneous
  Country: US (occurrence: None)
  Receive Date: 20121224
  Receipt Date: 20121224
  Transmission Date: 20130627
  Serious: Yes (Other)
  Sender: FDA-Public Use
  Company Number: None

PATIENT
  Age: 68 Year
  Sex: Female
  Weight: 47.63 kg

DRUGS (1)
  1. ATRIPLA [Suspect]
     Indication: HIV DISEASE
     Dosage: 600-200-300 Oral qd
     Dates: end: 201205

REACTIONS (1)
  - Renal impairment [None]
